FAERS Safety Report 25072748 (Version 1)
Quarter: 2025Q1

REPORT INFORMATION
  Report Type: Spontaneous
  Country: TR (occurrence: TR)
  Receive Date: 20250313
  Receipt Date: 20250313
  Transmission Date: 20250408
  Serious: No
  Sender: TOLMAR
  Company Number: TR-RECGATEWAY-2025001399

PATIENT
  Age: 76 Year
  Sex: Male

DRUGS (2)
  1. ELIGARD [Suspect]
     Active Substance: LEUPROLIDE ACETATE
     Indication: Prostate cancer
     Dates: start: 20250221
  2. ELIGARD [Suspect]
     Active Substance: LEUPROLIDE ACETATE
     Dates: start: 20240926

REACTIONS (2)
  - Intercepted product preparation error [Unknown]
  - Product packaging quantity issue [Unknown]

NARRATIVE: CASE EVENT DATE: 20250221
